FAERS Safety Report 22030848 (Version 3)
Quarter: 2025Q4

REPORT INFORMATION
  Report Type: Spontaneous
  Country: US (occurrence: US)
  Receive Date: 20230223
  Receipt Date: 20251120
  Transmission Date: 20260117
  Serious: Yes (Other)
  Sender: PFIZER
  Company Number: US-PFIZER INC-PV202300034668

PATIENT
  Age: 75 Year
  Sex: Male

DRUGS (1)
  1. XELJANZ XR [Suspect]
     Active Substance: TOFACITINIB CITRATE
     Indication: Arthritis
     Dosage: TAKE 1 TABLET BY MOUTH EVERY DAY
     Route: 048

REACTIONS (2)
  - Eye operation [Unknown]
  - Drug ineffective [Unknown]

NARRATIVE: CASE EVENT DATE: 20230220
